FAERS Safety Report 25161500 (Version 4)
Quarter: 2025Q3

REPORT INFORMATION
  Report Type: Spontaneous
  Country: JP (occurrence: JP)
  Receive Date: 20250404
  Receipt Date: 20250918
  Transmission Date: 20251020
  Serious: Yes (Hospitalization, Other)
  Sender: ALEXION PHARMACEUTICALS
  Company Number: JP-ASTRAZENECA-250031681_063010_P_1

PATIENT
  Age: 79 Year
  Sex: Female

DRUGS (1)
  1. DAPAGLIFLOZIN [Suspect]
     Active Substance: DAPAGLIFLOZIN
     Indication: Cardiac failure chronic
     Dates: start: 20230731, end: 20250516

REACTIONS (3)
  - Cardiac failure congestive [Unknown]
  - Cardiac failure [Unknown]
  - Urinary tract infection [Recovering/Resolving]
